FAERS Safety Report 6467840-9 (Version None)
Quarter: 2009Q4

REPORT INFORMATION
  Report Type: 
  Country: None (occurrence: None)
  Receive Date: 20091202
  Receipt Date: 20091119
  Transmission Date: 20100525
  Serious: Yes (Death, Other)
  Sender: FDA-Public Use
  Company Number: ES-PFIZER INC-2009304447

PATIENT
  Sex: Male

DRUGS (5)
  1. SERTRALINE HCL [Suspect]
     Indication: DEPRESSIVE SYMPTOM
     Dosage: 100 MG/DAY
     Dates: start: 20010101
  2. TRAZODONE HCL [Suspect]
     Indication: DEPRESSIVE SYMPTOM
  3. APOMORPHINE [Suspect]
     Indication: PARKINSON'S DISEASE
     Route: 058
  4. SINEMET [Suspect]
     Indication: PARKINSON'S DISEASE
     Dosage: UNK
     Dates: start: 20080501
  5. ALPRAZOLAM [Concomitant]
     Indication: DEPRESSIVE SYMPTOM
     Dosage: 1 MG/DAY
     Dates: start: 20010101

REACTIONS (5)
  - AGGRESSION [None]
  - COMPLETED SUICIDE [None]
  - HALLUCINATION, VISUAL [None]
  - MANIA [None]
  - ORTHOSTATIC HYPOTENSION [None]
